FAERS Safety Report 18815637 (Version 1)
Quarter: 2021Q1

REPORT INFORMATION
  Report Type: Spontaneous
  Country: US (occurrence: US)
  Receive Date: 20210131
  Receipt Date: 20210131
  Transmission Date: 20210419
  Serious: Yes (Disabling)
  Sender: FDA-Public Use
  Company Number: None

PATIENT
  Age: 24 Year
  Sex: Female
  Weight: 78.75 kg

DRUGS (1)
  1. BUSPIRONE [Suspect]
     Active Substance: BUSPIRONE HYDROCHLORIDE
     Indication: ANXIETY
     Dosage: ?          QUANTITY:.5 TABLET(S);?
     Route: 048
     Dates: start: 20200902, end: 20200903

REACTIONS (9)
  - Panic attack [None]
  - Impaired quality of life [None]
  - Anxiety [None]
  - Headache [None]
  - Nausea [None]
  - Vomiting [None]
  - Crying [None]
  - Dizziness [None]
  - Palpitations [None]

NARRATIVE: CASE EVENT DATE: 20200902
